FAERS Safety Report 19788469 (Version 1)
Quarter: 2021Q3

REPORT INFORMATION
  Report Type: Report from Study
  Country: BR (occurrence: BR)
  Receive Date: 20210903
  Receipt Date: 20210903
  Transmission Date: 20211014
  Serious: Yes (Other)
  Sender: FDA-Public Use
  Company Number: NVSC2021BR197909

PATIENT
  Sex: Female

DRUGS (2)
  1. AZOPT [Suspect]
     Active Substance: BRINZOLAMIDE
     Indication: OCULAR HYPERTENSION
     Dosage: UNK, TID (MORE THAN 20 YEARS AGO)
     Route: 065
  2. XALATAN [Concomitant]
     Active Substance: LATANOPROST
     Indication: PRODUCT USED FOR UNKNOWN INDICATION
     Dosage: UNK (AT NIGHT MORE THAN 20 YEARS AGO)
     Route: 065

REACTIONS (6)
  - Headache [Unknown]
  - Vision blurred [Unknown]
  - Glaucoma [Not Recovered/Not Resolved]
  - Sight disability [Unknown]
  - Eye disorder [Unknown]
  - Eye pain [Unknown]
